FAERS Safety Report 8512238-2 (Version None)
Quarter: 2012Q3

REPORT INFORMATION
  Report Type: 
  Country: None (occurrence: None)
  Receive Date: 20120716
  Receipt Date: 20120709
  Transmission Date: 20120928
  Serious: Yes (Hospitalization, Other)
  Sender: FDA-Public Use
  Company Number: PHHY2010US67421

PATIENT
  Sex: Female
  Weight: 85.8 kg

DRUGS (29)
  1. ALLEGRA [Concomitant]
  2. OMEPRAZOLE [Concomitant]
  3. GLEEVEC [Suspect]
     Indication: CHRONIC MYELOID LEUKAEMIA
     Dosage: 400 MG, QD
     Route: 048
     Dates: start: 20100501
  4. GLEEVEC [Suspect]
     Dosage: 100 MG, UNK
     Route: 048
  5. GLEEVEC [Suspect]
     Dosage: 200 MG, UNK
     Route: 048
  6. NEURONTIN [Concomitant]
  7. INSULIN [Concomitant]
  8. IRON [Concomitant]
  9. MUCINEX [Concomitant]
  10. ALLOPURINOL [Concomitant]
     Dosage: 600 MG, UNK
  11. HUMULIN 70/30 [Concomitant]
  12. PRILOSEC [Concomitant]
  13. KEFLEX [Concomitant]
  14. TOPROL-XL [Concomitant]
  15. CODEINE SULFATE [Concomitant]
  16. POTASSIUM CHLORIDE [Concomitant]
  17. OMEGA-3 FATTY ACIDS [Concomitant]
  18. COENZYME Q10 [Concomitant]
  19. FISH OIL [Concomitant]
  20. LEVAQUIN [Concomitant]
  21. CALCIUM [Concomitant]
  22. LEVOTHYROXINE SODIUM [Concomitant]
  23. METOPROLOL TARTRATE [Concomitant]
  24. POTASSIUM CHLORIDE [Concomitant]
  25. STEROIDS NOS [Concomitant]
  26. GABAPENTIN [Concomitant]
  27. VITAMIN D [Concomitant]
  28. FEXOFENADINE [Concomitant]
  29. CEPHALEXIN [Concomitant]

REACTIONS (16)
  - DYSPNOEA [None]
  - NEUTROPENIA [None]
  - BLOOD CREATININE INCREASED [None]
  - BRONCHITIS [None]
  - FATIGUE [None]
  - EXOSTOSIS [None]
  - ABDOMINAL PAIN UPPER [None]
  - PNEUMONIA [None]
  - ANAEMIA [None]
  - UPPER RESPIRATORY TRACT INFECTION [None]
  - DYSGEUSIA [None]
  - COUGH [None]
  - BLOOD GLUCOSE INCREASED [None]
  - HYPOTENSION [None]
  - FLUID OVERLOAD [None]
  - PYREXIA [None]
